FAERS Safety Report 9956749 (Version 1)
Quarter: 2014Q1

REPORT INFORMATION
  Report Type: Report from Study
  Country: US (occurrence: US)
  Receive Date: 20140304
  Receipt Date: 20140304
  Transmission Date: 20141002
  Serious: No
  Sender: FDA-Public Use
  Company Number: US-ABBVIE-13P-163-1098639-00

PATIENT
  Sex: Male

DRUGS (4)
  1. HUMIRA [Suspect]
     Indication: JUVENILE IDIOPATHIC ARTHRITIS
     Dates: start: 201301
  2. METHOTREXATE [Concomitant]
     Indication: JUVENILE IDIOPATHIC ARTHRITIS
     Dosage: 2.5MG X 5 WEEKLY= 12.5MG
  3. NORCO [Concomitant]
     Indication: PAIN
     Dosage: 10/325 X 4 DAILY
  4. BICILLIN [Concomitant]
     Indication: RHEUMATIC FEVER
     Dosage: 2ML UNITS X 1 TIMES A MONTH

REACTIONS (1)
  - Hypersensitivity [Not Recovered/Not Resolved]
